FAERS Safety Report 5636522-5 (Version None)
Quarter: 2008Q1

REPORT INFORMATION
  Report Type: 
  Country: None (occurrence: None)
  Receive Date: 20080219
  Receipt Date: 20080219
  Transmission Date: 20080703
  Serious: Yes (Life-Threatening, Hospitalization, Disabling, Other)
  Sender: FDA-Public Use
  Company Number: None

PATIENT
  Age: 36 Year
  Sex: Female
  Weight: 88.4514 kg

DRUGS (3)
  1. CYMBALTA [Suspect]
     Indication: DEPRESSION
     Dosage: 1 PO QD PO
     Route: 048
     Dates: start: 20060106, end: 20060801
  2. MEPERGAN [Suspect]
     Indication: NAUSEA
     Dosage: 1 PO PRN PO
     Route: 048
     Dates: start: 20060726, end: 20060801
  3. MEPERGAN [Suspect]
     Indication: PAIN
     Dosage: 1 PO PRN PO
     Route: 048
     Dates: start: 20060726, end: 20060801

REACTIONS (10)
  - AGITATION [None]
  - BLOOD PRESSURE INCREASED [None]
  - DRUG INTERACTION [None]
  - HEART RATE INCREASED [None]
  - INSOMNIA [None]
  - MOOD ALTERED [None]
  - MUSCLE TWITCHING [None]
  - NERVOUS SYSTEM DISORDER [None]
  - SELF INJURIOUS BEHAVIOUR [None]
  - SEROTONIN SYNDROME [None]
